FAERS Safety Report 5234798-X (Version None)
Quarter: 2007Q1

REPORT INFORMATION
  Report Type: 
  Country: None (occurrence: None)
  Receive Date: 20070209
  Receipt Date: 20070130
  Transmission Date: 20070707
  Serious: Yes (Other)
  Sender: FDA-Public Use
  Company Number: DE-PFIZER INC-2006154666

PATIENT
  Sex: Female
  Weight: 80 kg

DRUGS (1)
  1. CELEBREX [Suspect]
     Indication: PAIN
     Dosage: DAILY DOSE:200MG-FREQ:DAILY
     Route: 048
     Dates: start: 20061109, end: 20061101

REACTIONS (2)
  - GENERALISED ERYTHEMA [None]
  - PRURITUS [None]
